FAERS Safety Report 10027408 (Version 1)
Quarter: 2014Q1

REPORT INFORMATION
  Report Type: Spontaneous
  Country: PT (occurrence: None)
  Receive Date: 20140318
  Receipt Date: 20140318
  Transmission Date: 20141002
  Serious: Yes (Other)
  Sender: FDA-Public Use
  Company Number: SYM-2014-18506

PATIENT
  Age: 71 Year
  Sex: Male

DRUGS (10)
  1. FLUOROURACIL (FLUOROURACIL) (FLUOROURACIL) [Suspect]
     Indication: COLON CANCER
     Dates: start: 2006
  2. ETHAMBUTOL (ETHAMBUTOL) (ETHAMBUTOL) [Suspect]
     Indication: PLEURAL DISORDER
     Dates: start: 201207, end: 201209
  3. ETHAMBUTOL (ETHAMBUTOL) (ETHAMBUTOL) [Suspect]
     Indication: TUBERCULOSIS
     Dates: start: 201207, end: 201209
  4. ISONIAZID (ISONIAZID) (ISONIAZID) [Suspect]
     Indication: PLEURAL DISORDER
     Dates: start: 201207, end: 201209
  5. ISONIAZID (ISONIAZID) (ISONIAZID) [Suspect]
     Indication: TUBERCULOSIS
     Dates: start: 201207, end: 201209
  6. RIFAMPIN (RIFAMPICIN) (RIFAMPICIN) [Suspect]
     Indication: PLEURAL DISORDER
     Dates: start: 201207, end: 201209
  7. RIFAMPIN (RIFAMPICIN) (RIFAMPICIN) [Suspect]
     Indication: TUBERCULOSIS
     Dates: start: 201207, end: 201209
  8. PYRAZINAMIDE (PYRAZINAMIDE) (PYRAZINAMIDE) [Suspect]
     Indication: PLEURAL DISORDER
     Dates: start: 201207, end: 201209
  9. PYRAZINAMIDE (PYRAZINAMIDE) (PYRAZINAMIDE) [Suspect]
     Indication: TUBERCULOSIS
     Dates: start: 201207, end: 201209
  10. CLARITHROMYCIN [Concomitant]

REACTIONS (5)
  - Tuberculosis [None]
  - Disease recurrence [None]
  - Pleural effusion [None]
  - Pleural fibrosis [None]
  - Hepatitis toxic [None]
